FAERS Safety Report 9934440 (Version 3)
Quarter: 2014Q2

REPORT INFORMATION
  Report Type: Report from Study
  Country: DE (occurrence: DE)
  Receive Date: 20140228
  Receipt Date: 20140515
  Transmission Date: 20141212
  Serious: Yes (Hospitalization)
  Sender: FDA-Public Use
  Company Number: PHHY2014DE024629

PATIENT
  Sex: Female
  Weight: 48 kg

DRUGS (7)
  1. GLYCOPYRRONIUM BROMIDE [Suspect]
     Indication: CHRONIC OBSTRUCTIVE PULMONARY DISEASE
     Dosage: 44 UG, QD
     Route: 055
     Dates: start: 20130613
  2. ULTIBRO BREEZHALER [Suspect]
     Indication: CHRONIC OBSTRUCTIVE PULMONARY DISEASE
     Dosage: 1 DF, QD
     Route: 055
     Dates: start: 20131204
  3. ACC LONG [Concomitant]
  4. CALCIUM D3 CT [Concomitant]
  5. MIFLONIDE [Concomitant]
  6. PANTOZOL [Concomitant]
  7. SALBUTAMOL [Concomitant]

REACTIONS (1)
  - Chronic obstructive pulmonary disease [Not Recovered/Not Resolved]
